FAERS Safety Report 5424201-9 (Version None)
Quarter: 2007Q3

REPORT INFORMATION
  Report Type: 
  Country: None (occurrence: None)
  Receive Date: 20070822
  Receipt Date: 20070809
  Transmission Date: 20080115
  Serious: Yes (Other)
  Sender: FDA-Public Use
  Company Number: 100#03#2007-02968

PATIENT
  Age: 46 Year
  Sex: Male

DRUGS (4)
  1. CISPLATIN [Suspect]
     Indication: ANGIOIMMUNOBLASTIC T-CELL LYMPHOMA STAGE IV
     Dosage: 100 MG/M2
  2. GEMCITABINE [Suspect]
     Indication: ANGIOIMMUNOBLASTIC T-CELL LYMPHOMA STAGE IV
     Dosage: 1 G M2 DAY 1, 8, 15
  3. METHYLPREDNISOLONE [Suspect]
     Indication: ANGIOIMMUNOBLASTIC T-CELL LYMPHOMA STAGE IV
     Dosage: 1 G DAY 1-5
  4. VINCRISTINE [Concomitant]

REACTIONS (1)
  - NEUTROPENIA [None]
